FAERS Safety Report 20281852 (Version 1)
Quarter: 2022Q1

REPORT INFORMATION
  Report Type: Spontaneous
  Country: GB (occurrence: GB)
  Receive Date: 20220103
  Receipt Date: 20220103
  Transmission Date: 20220424
  Serious: Yes (Other)
  Sender: FDA-Public Use
  Company Number: None

PATIENT
  Age: 18 Year
  Sex: Male
  Weight: 69.85 kg

DRUGS (6)
  1. ATOMOXETINE [Suspect]
     Active Substance: ATOMOXETINE
     Indication: Attention deficit hyperactivity disorder
     Dosage: UNK (25MG UP TO 60MG)
     Route: 048
     Dates: start: 20210903, end: 20211215
  2. MELATONIN [Concomitant]
     Active Substance: MELATONIN
     Dosage: UNK
  3. PFIZER-BIONTECH COVID-19 VACCINE [Concomitant]
     Active Substance: TOZINAMERAN
     Dosage: UNK (DOSE 2)
     Dates: start: 20210824, end: 20210824
  4. FEXOFENADINE HYDROCHLORIDE [Concomitant]
     Active Substance: FEXOFENADINE HYDROCHLORIDE
     Dosage: UNK
  5. ISOTRETINOIN [Concomitant]
     Active Substance: ISOTRETINOIN
     Dosage: UNK
  6. Tetralysal [Concomitant]
     Dosage: UNK

REACTIONS (2)
  - Erectile dysfunction [Recovered/Resolved]
  - Penile size reduced [Recovered/Resolved]
